FAERS Safety Report 15943211 (Version 3)
Quarter: 2019Q2

REPORT INFORMATION
  Report Type: Spontaneous
  Country: US (occurrence: US)
  Receive Date: 20190210
  Receipt Date: 20190416
  Transmission Date: 20190711
  Serious: Yes (Other)
  Sender: FDA-Public Use
  Company Number: US-ASTRAZENECA-2018SF33768

PATIENT
  Age: 733 Month
  Sex: Female
  Weight: 29.9 kg

DRUGS (33)
  1. NEXIUM [Suspect]
     Active Substance: ESOMEPRAZOLE MAGNESIUM
     Indication: GASTROOESOPHAGEAL REFLUX DISEASE
     Route: 048
     Dates: start: 20080101, end: 20151231
  2. ZINC SULFATE [Concomitant]
     Active Substance: ZINC SULFATE\ZINC SULFATE ANHYDROUS
     Route: 048
  3. CIPROFLOXACIN. [Concomitant]
     Active Substance: CIPROFLOXACIN
     Dosage: 5.0MG CONTINUOUSLY
     Route: 048
  4. ALBUTEROL. [Concomitant]
     Active Substance: ALBUTEROL
  5. ASPIRIN. [Concomitant]
     Active Substance: ASPIRIN
     Route: 048
  6. AMLODIPINE [Concomitant]
     Active Substance: AMLODIPINE BESYLATE
     Route: 048
  7. MEPERIDINE [Concomitant]
     Active Substance: MEPERIDINE
     Route: 048
  8. OXYCODONE [Concomitant]
     Active Substance: OXYCODONE
     Route: 048
  9. PRILOSEC [Suspect]
     Active Substance: OMEPRAZOLE MAGNESIUM
     Indication: GASTROOESOPHAGEAL REFLUX DISEASE
     Route: 048
     Dates: start: 200801, end: 201512
  10. PROPRANOLOL [Concomitant]
     Active Substance: PROPRANOLOL HYDROCHLORIDE
     Indication: DEPRESSION
  11. LOSARTAN. [Concomitant]
     Active Substance: LOSARTAN
     Route: 048
  12. TRAMADOL. [Concomitant]
     Active Substance: TRAMADOL
     Route: 048
  13. HYDROXYZINE [Concomitant]
     Active Substance: HYDROXYZINE HYDROCHLORIDE
     Route: 048
  14. PRAVACHOL [Concomitant]
     Active Substance: PRAVASTATIN SODIUM
     Route: 048
  15. LABETALOL [Concomitant]
     Active Substance: LABETALOL\LABETALOL HYDROCHLORIDE
     Route: 048
  16. NEXIUM [Suspect]
     Active Substance: ESOMEPRAZOLE MAGNESIUM
     Indication: GASTROOESOPHAGEAL REFLUX DISEASE
     Route: 048
     Dates: start: 200801, end: 201512
  17. ISOSORBIDE DINITRATE. [Concomitant]
     Active Substance: ISOSORBIDE DINITRATE
     Route: 048
  18. RANITIDINE. [Concomitant]
     Active Substance: RANITIDINE
     Route: 048
  19. TRAMADOL. [Concomitant]
     Active Substance: TRAMADOL
     Route: 048
  20. ATORVASTATIN [Concomitant]
     Active Substance: ATORVASTATIN
     Dosage: 5.0MG CONTINUOUSLY
     Route: 048
  21. ACETAMINOPHEN. [Concomitant]
     Active Substance: ACETAMINOPHEN
     Route: 048
  22. ONDANSETRON [Concomitant]
     Active Substance: ONDANSETRON
     Route: 048
  23. FENTANYL. [Concomitant]
     Active Substance: FENTANYL
     Route: 048
  24. DIAZEPAM. [Concomitant]
     Active Substance: DIAZEPAM
     Dosage: 5.0MG CONTINUOUSLY
     Route: 048
  25. SUCRALFATE. [Concomitant]
     Active Substance: SUCRALFATE
     Route: 048
  26. PRAVASTATIN. [Concomitant]
     Active Substance: PRAVASTATIN
     Dosage: 40.0MG CONTINUOUSLY
     Route: 048
  27. SERTRALINE [Concomitant]
     Active Substance: SERTRALINE HYDROCHLORIDE
     Route: 048
  28. CITALOPRAM [Concomitant]
     Active Substance: CITALOPRAM HYDROBROMIDE
     Route: 048
  29. MORPHINE [Concomitant]
     Active Substance: MORPHINE
     Dosage: 5.0MG CONTINUOUSLY
     Route: 048
  30. HYDROCHLOROTHIAZIDE. [Concomitant]
     Active Substance: HYDROCHLOROTHIAZIDE
     Route: 048
  31. CHOLECALCIFEROL [Concomitant]
     Active Substance: CHOLECALCIFEROL
     Route: 048
  32. CLONAZEPAM. [Concomitant]
     Active Substance: CLONAZEPAM
     Route: 048
  33. IBUPROFEN. [Concomitant]
     Active Substance: IBUPROFEN
     Route: 048

REACTIONS (3)
  - Renal injury [Unknown]
  - Acute kidney injury [Not Recovered/Not Resolved]
  - Chronic kidney disease [Not Recovered/Not Resolved]

NARRATIVE: CASE EVENT DATE: 201004
